FAERS Safety Report 17861161 (Version 2)
Quarter: 2020Q4

REPORT INFORMATION
  Report Type: Spontaneous
  Country: US (occurrence: US)
  Receive Date: 20200604
  Receipt Date: 20201221
  Transmission Date: 20210113
  Serious: Yes (Other)
  Sender: FDA-Public Use
  Company Number: US-NAPPMUNDI-USA-2020-0151693

PATIENT
  Age: 44 Year
  Sex: Male
  Weight: 77 kg

DRUGS (2)
  1. OXYCODONE HYDROCHLORIDE (SIMILAR TO NDA 22-272) [Suspect]
     Active Substance: OXYCODONE HYDROCHLORIDE
     Indication: LUMBOSACRAL PLEXUS INJURY
     Dosage: UNK
     Route: 048
     Dates: start: 1998, end: 2002
  2. OXYCONTIN [Suspect]
     Active Substance: OXYCODONE HYDROCHLORIDE
     Indication: LUMBOSACRAL PLEXUS INJURY
     Dosage: UNK
     Route: 048

REACTIONS (6)
  - Overdose [Unknown]
  - Spinal pain [Unknown]
  - Delirium [Unknown]
  - Hypoaesthesia [Unknown]
  - Drug dependence [Unknown]
  - Ataxia [Unknown]

NARRATIVE: CASE EVENT DATE: 199801
